FAERS Safety Report 14011120 (Version 1)
Quarter: 2017Q3

REPORT INFORMATION
  Report Type: Spontaneous
  Country: US (occurrence: US)
  Receive Date: 20170926
  Receipt Date: 20170926
  Transmission Date: 20171128
  Serious: Yes (Disabling)
  Sender: FDA-Public Use
  Company Number: None

PATIENT
  Age: 61 Year
  Sex: Female
  Weight: 115.2 kg

DRUGS (10)
  1. VITAMIN B12 [Concomitant]
     Active Substance: CYANOCOBALAMIN
  2. MAGNESIUM [Concomitant]
     Active Substance: MAGNESIUM
  3. ZINC. [Concomitant]
     Active Substance: ZINC
  4. AMOXICILLIAN [Concomitant]
     Active Substance: AMOXICILLIN
  5. GABAPENTIN. [Suspect]
     Active Substance: GABAPENTIN
     Indication: NEUROPATHY PERIPHERAL
     Dosage: ?          QUANTITY:1 TABLET(S);?
     Route: 048
  6. FISH OIL [Concomitant]
     Active Substance: FISH OIL
  7. MULTIVITAMIN [Concomitant]
     Active Substance: VITAMINS
  8. APPLE CIDER VINEGAR [Concomitant]
     Active Substance: APPLE CIDER VINEGAR
  9. LEVAQUIN [Suspect]
     Active Substance: LEVOFLOXACIN
     Indication: GASTRIC BYPASS
     Dosage: ?          QUANTITY:2 TABLET(S);?
     Route: 048
  10. LEVOTHYROXIN [Concomitant]
     Active Substance: LEVOTHYROXINE

REACTIONS (7)
  - Liver disorder [None]
  - Weight increased [None]
  - Hypoacusis [None]
  - Joint arthroplasty [None]
  - Knee arthroplasty [None]
  - Gastrointestinal disorder [None]
  - Gastrooesophageal reflux disease [None]

NARRATIVE: CASE EVENT DATE: 20040326
